FAERS Safety Report 5035340-9 (Version None)
Quarter: 2006Q2

REPORT INFORMATION
  Report Type: 
  Country: None (occurrence: None)
  Receive Date: 20060523
  Receipt Date: 20050426
  Transmission Date: 20061013
  Serious: Yes (Other)
  Sender: FDA-Public Use
  Company Number: 0504-179

PATIENT
  Age: 5 Month
  Sex: Male

DRUGS (1)
  1. DUONEB [Suspect]
     Indication: BRONCHIAL HYPERACTIVITY
     Dosage: NEBULIZED
     Dates: start: 20050301

REACTIONS (1)
  - FLUSHING [None]
